FAERS Safety Report 8417983-5 (Version None)
Quarter: 2012Q2

REPORT INFORMATION
  Report Type: 
  Country: None (occurrence: None)
  Receive Date: 20120525
  Receipt Date: 20120525
  Transmission Date: 20120825
  Serious: No
  Sender: FDA-Public Use
  Company Number: None

PATIENT
  Sex: Female

DRUGS (1)
  1. BOTOX [Suspect]
     Indication: POLIOMYELITIS
     Dosage: 200 UNITS EVERY 3 MONT IM
     Route: 030
     Dates: start: 20111104, end: 20120223

REACTIONS (1)
  - MUSCLE SPASMS [None]
